FAERS Safety Report 20665051 (Version 5)
Quarter: 2022Q3

REPORT INFORMATION
  Report Type: Spontaneous
  Country: GB (occurrence: GB)
  Receive Date: 20220401
  Receipt Date: 20220908
  Transmission Date: 20221027
  Serious: Yes (Death)
  Sender: FDA-Public Use
  Company Number: GB-GE HEALTHCARE-2022CSU002152

PATIENT
  Age: 65 Year
  Sex: Female
  Weight: 75 kg

DRUGS (2)
  1. OMNIPAQUE [Suspect]
     Active Substance: IOHEXOL
     Indication: Urogram
     Dosage: 60 ML INTRAVENOUS IN THE LEFT HAND, ONCE
     Route: 042
     Dates: start: 20220328, end: 20220328
  2. OMNIPAQUE [Suspect]
     Active Substance: IOHEXOL
     Indication: Product used for unknown indication

REACTIONS (6)
  - Panic attack [Fatal]
  - Retching [Fatal]
  - Malaise [Fatal]
  - Cardiac arrest [Fatal]
  - Cyanosis [Fatal]
  - Dyspnoea [Fatal]

NARRATIVE: CASE EVENT DATE: 20220328
